FAERS Safety Report 21443191 (Version 2)
Quarter: 2022Q4

REPORT INFORMATION
  Report Type: Spontaneous
  Country: IE (occurrence: IE)
  Receive Date: 20221012
  Receipt Date: 20221214
  Transmission Date: 20230113
  Serious: Yes (Hospitalization)
  Sender: FDA-Public Use
  Company Number: IE-JNJFOC-20221007438

PATIENT
  Age: 40 Year
  Sex: Female

DRUGS (2)
  1. STELARA [Suspect]
     Active Substance: USTEKINUMAB
     Indication: Inflammatory bowel disease
     Route: 040
  2. STELARA [Suspect]
     Active Substance: USTEKINUMAB
     Route: 058
     Dates: start: 20220927

REACTIONS (1)
  - Peripheral swelling [Unknown]

NARRATIVE: CASE EVENT DATE: 20220101
